FAERS Safety Report 6577010-1 (Version None)
Quarter: 2010Q1

REPORT INFORMATION
  Report Type: 
  Country: None (occurrence: None)
  Receive Date: 20100210
  Receipt Date: 20100204
  Transmission Date: 20100710
  Serious: Yes (Hospitalization)
  Sender: FDA-Public Use
  Company Number: US-GILEAD-2010-0026921

PATIENT
  Sex: Male
  Weight: 109.41 kg

DRUGS (26)
  1. LETAIRIS [Suspect]
     Indication: PULMONARY ARTERIAL HYPERTENSION
     Route: 048
     Dates: start: 20090528
  2. COUMADIN [Concomitant]
  3. LASIX [Concomitant]
  4. LISINOPRIL [Concomitant]
  5. DIGOXIN [Concomitant]
  6. HYTRIN [Concomitant]
  7. LEVAQUIN [Concomitant]
  8. CLARITIN-D [Concomitant]
  9. VERAMYST [Concomitant]
  10. VITAMIN B-12 [Concomitant]
  11. PROSCAR [Concomitant]
  12. PRILOSEC [Concomitant]
  13. THEOPHYLLINE [Concomitant]
  14. CILOSTAZOL [Concomitant]
  15. LOVASTATIN [Concomitant]
  16. TRIAMCINOLONE [Concomitant]
  17. ASPIRIN [Concomitant]
  18. NOVOLOG [Concomitant]
  19. ADVAIR DISKUS 100/50 [Concomitant]
  20. ALBUTEROL [Concomitant]
  21. VITAMIN E [Concomitant]
  22. NITROGLYCERIN [Concomitant]
  23. CO-Q10 [Concomitant]
  24. CINNAMON [Concomitant]
  25. SPIRIVA [Concomitant]
  26. POTASSIUM CHLORIDE [Concomitant]

REACTIONS (1)
  - COLON NEOPLASM [None]
